FAERS Safety Report 5011201-6 (Version None)
Quarter: 2006Q2

REPORT INFORMATION
  Report Type: 
  Country: None (occurrence: None)
  Receive Date: 20060523
  Receipt Date: 20060427
  Transmission Date: 20061013
  Serious: Yes (Hospitalization)
  Sender: FDA-Public Use
  Company Number: WAES 0605NLD00007

PATIENT

DRUGS (1)
  1. ZOCOR [Suspect]
     Indication: NEOPLASM
     Dosage: 12.5 MG/KG/ PO
     Route: 048

REACTIONS (14)
  - CONDITION AGGRAVATED [None]
  - DEHYDRATION [None]
  - DEPRESSION [None]
  - DIARRHOEA [None]
  - FATIGUE [None]
  - FEBRILE NEUTROPENIA [None]
  - GASTROINTESTINAL DISORDER [None]
  - MALIGNANT NEOPLASM PROGRESSION [None]
  - MULTIPLE MYELOMA [None]
  - NAUSEA [None]
  - NEUTROPENIC SEPSIS [None]
  - RENAL TUBULAR NECROSIS [None]
  - SEPTIC SHOCK [None]
  - SUICIDE ATTEMPT [None]
